FAERS Safety Report 17215012 (Version 1)
Quarter: 2019Q4

REPORT INFORMATION
  Report Type: Spontaneous
  Country: CN (occurrence: CN)
  Receive Date: 20191230
  Receipt Date: 20191230
  Transmission Date: 20200122
  Serious: Yes (Other)
  Sender: FDA-Public Use
  Company Number: CN-PFIZER INC-2019557132

PATIENT
  Age: 77 Year
  Sex: Female
  Weight: 80 kg

DRUGS (2)
  1. JI JIA [Concomitant]
     Active Substance: IRBESARTAN
     Indication: PROPHYLAXIS
     Dosage: 0.15 G, 1X/DAY
     Route: 048
     Dates: start: 20191120, end: 20191120
  2. LIPITOR [Suspect]
     Active Substance: ATORVASTATIN CALCIUM
     Indication: PROPHYLAXIS
     Dosage: 20 MG, 1X/DAY
     Route: 048
     Dates: start: 20191120, end: 20191120

REACTIONS (3)
  - Anaphylactic shock [Recovered/Resolved]
  - Rash [Recovered/Resolved]
  - Blood pressure decreased [Recovered/Resolved]

NARRATIVE: CASE EVENT DATE: 20191120
